FAERS Safety Report 9874726 (Version 1)
Quarter: 2014Q1

REPORT INFORMATION
  Report Type: Spontaneous
  Country: ES (occurrence: ES)
  Receive Date: 20140206
  Receipt Date: 20140206
  Transmission Date: 20141002
  Serious: Yes (Death, Other)
  Sender: FDA-Public Use
  Company Number: PHHY2014ES012286

PATIENT
  Age: 78 Year
  Sex: Male

DRUGS (2)
  1. DEFERASIROX [Suspect]
     Indication: IRON OVERLOAD
     Dosage: 20 MG/KG, PER DAY
  2. COLONY STIMULATING FACTORS [Concomitant]

REACTIONS (4)
  - Haemorrhage [Fatal]
  - Infection [Fatal]
  - Acute myeloid leukaemia [Unknown]
  - Therapeutic response unexpected [Unknown]
